FAERS Safety Report 6034306-X (Version None)
Quarter: 2009Q1

REPORT INFORMATION
  Report Type: 
  Country: None (occurrence: None)
  Receive Date: 20090112
  Receipt Date: 20090105
  Transmission Date: 20090719
  Serious: Yes (Other)
  Sender: FDA-Public Use
  Company Number: FR-WYE-G02881209

PATIENT
  Sex: Female

DRUGS (1)
  1. EFFEXOR [Suspect]
     Indication: DEPRESSION
     Dosage: 150 MG TOTAL WEEKLY
     Route: 048
     Dates: start: 20060101

REACTIONS (2)
  - ECCHYMOSIS [None]
  - IDIOPATHIC THROMBOCYTOPENIC PURPURA [None]
